FAERS Safety Report 15016011 (Version 5)
Quarter: 2018Q4

REPORT INFORMATION
  Report Type: Report from Study
  Country: FR (occurrence: FR)
  Receive Date: 20180615
  Receipt Date: 20181112
  Transmission Date: 20190204
  Serious: Yes (Hospitalization, Disabling, Other)
  Sender: FDA-Public Use
  Company Number: FR-BEH-2018091357

PATIENT
  Age: 59 Year
  Sex: Male

DRUGS (21)
  1. IDELVION [Suspect]
     Active Substance: COAGULATION FACTOR IX RECOMBINANT HUMAN
     Dosage: UNK
     Route: 042
     Dates: start: 20180501
  2. IDELVION [Suspect]
     Active Substance: COAGULATION FACTOR IX RECOMBINANT HUMAN
     Dosage: UNK
     Route: 042
     Dates: start: 20180508
  3. IDELVION [Suspect]
     Active Substance: COAGULATION FACTOR IX RECOMBINANT HUMAN
     Dosage: UNK
     Route: 042
     Dates: start: 20180514
  4. IDELVION [Suspect]
     Active Substance: COAGULATION FACTOR IX RECOMBINANT HUMAN
     Dosage: UNK
     Route: 042
     Dates: start: 20180514
  5. IDELVION [Suspect]
     Active Substance: COAGULATION FACTOR IX RECOMBINANT HUMAN
     Indication: PROPHYLAXIS
     Dosage: UNK
     Route: 042
     Dates: start: 20180501
  6. IDELVION [Suspect]
     Active Substance: COAGULATION FACTOR IX RECOMBINANT HUMAN
     Dosage: 3252 IU, TOT
     Route: 042
     Dates: start: 20180508
  7. IDELVION [Suspect]
     Active Substance: COAGULATION FACTOR IX RECOMBINANT HUMAN
     Dosage: 3252 IU, TOT
     Route: 042
     Dates: start: 20180522
  8. IDELVION [Suspect]
     Active Substance: COAGULATION FACTOR IX RECOMBINANT HUMAN
     Dosage: UNK
     Route: 042
     Dates: start: 20180522
  9. IDELVION [Suspect]
     Active Substance: COAGULATION FACTOR IX RECOMBINANT HUMAN
     Indication: FACTOR IX DEFICIENCY
     Dosage: 3252 IU, TOT
     Route: 042
     Dates: start: 20180501
  10. IDELVION [Suspect]
     Active Substance: COAGULATION FACTOR IX RECOMBINANT HUMAN
     Dosage: UNK
     Route: 042
     Dates: start: 20180508
  11. PANTOPRAZOLE [Concomitant]
     Active Substance: PANTOPRAZOLE
     Indication: PROPHYLAXIS
     Dosage: 20 MG, TOT
     Route: 048
     Dates: start: 20180604, end: 20180604
  12. EMTRICITABINE [Concomitant]
     Active Substance: EMTRICITABINE
     Indication: DRUG THERAPY
     Dosage: 200000 MG, QD
     Route: 048
     Dates: start: 20130109
  13. LEVETIRACETAM. [Concomitant]
     Active Substance: LEVETIRACETAM
     Indication: DRUG THERAPY
     Dosage: 500000 MG, BID
     Route: 048
     Dates: start: 20140527
  14. IDELVION [Suspect]
     Active Substance: COAGULATION FACTOR IX RECOMBINANT HUMAN
     Dosage: UNK
     Route: 042
     Dates: start: 20180529
  15. EFAVIRENZ. [Concomitant]
     Active Substance: EFAVIRENZ
     Indication: DRUG THERAPY
     Dosage: 600000 MG, QD
     Route: 048
     Dates: start: 2011
  16. IDELVION [Suspect]
     Active Substance: COAGULATION FACTOR IX RECOMBINANT HUMAN
     Dosage: UNK
     Route: 042
     Dates: start: 20180529
  17. LYRICA [Concomitant]
     Active Substance: PREGABALIN
     Indication: PROPHYLAXIS
     Dosage: 75 MG, TOT
     Route: 048
     Dates: start: 20180604, end: 20180604
  18. TENOFOVIR [Concomitant]
     Active Substance: TENOFOVIR
     Indication: DRUG THERAPY
     Dosage: 245000 MG, QD
     Route: 048
     Dates: start: 20100109
  19. IDELVION [Suspect]
     Active Substance: COAGULATION FACTOR IX RECOMBINANT HUMAN
     Dosage: 3252 IU, TOT
     Route: 042
     Dates: start: 20180514
  20. IDELVION [Suspect]
     Active Substance: COAGULATION FACTOR IX RECOMBINANT HUMAN
     Dosage: UNK
     Route: 042
     Dates: start: 20180522
  21. IDELVION [Suspect]
     Active Substance: COAGULATION FACTOR IX RECOMBINANT HUMAN
     Dosage: 3252 IU, TOT
     Route: 042
     Dates: start: 20180529

REACTIONS (1)
  - Peripheral ischaemia [Not Recovered/Not Resolved]

NARRATIVE: CASE EVENT DATE: 20180603
